FAERS Safety Report 9108199 (Version 1)
Quarter: 2013Q1

REPORT INFORMATION
  Report Type: Spontaneous
  Country: NL (occurrence: NL)
  Receive Date: 20130221
  Receipt Date: 20130221
  Transmission Date: 20140127
  Serious: Yes (Other)
  Sender: FDA-Public Use
  Company Number: NL-MYLANLABS-2013S1003040

PATIENT
  Age: 76 Year
  Sex: Female
  Weight: 61 kg

DRUGS (3)
  1. IBANDRONATE [Suspect]
     Indication: OSTEOPOROSIS
     Dosage: 1XPER MAAND 150MG
     Route: 048
     Dates: start: 201210
  2. THYRAX DUO [Concomitant]
     Indication: PRODUCT USED FOR UNKNOWN INDICATION
     Dosage: 1DD100MCG
     Route: 048
  3. CALCI CHEW [Concomitant]
     Indication: PRODUCT USED FOR UNKNOWN INDICATION
     Dosage: 1DD500MG
     Route: 048

REACTIONS (4)
  - Therapeutic response unexpected with drug substitution [Unknown]
  - Dyspnoea [Unknown]
  - Pain in extremity [Unknown]
  - Chest pain [Unknown]
